FAERS Safety Report 7725346-0 (Version None)
Quarter: 2011Q3

REPORT INFORMATION
  Report Type: 
  Country: None (occurrence: None)
  Receive Date: 20110830
  Receipt Date: 20110719
  Transmission Date: 20111222
  Serious: Yes (Life-Threatening, Other)
  Sender: FDA-Public Use
  Company Number: GER/GER/11/0019193

PATIENT
  Age: 59 Year
  Sex: Female

DRUGS (6)
  1. AMLODIPINE [Concomitant]
  2. ASPIRIN [Concomitant]
  3. RAMIPRIL [Concomitant]
  4. METFORMIN HYDROCHLORIDE [Suspect]
     Indication: DIABETES MELLITUS
     Dosage: 1000 MG, ORAL
     Route: 048
  5. SIMVABETA [Concomitant]
  6. METFORMIN HYDROCHLORIDE [Suspect]
     Indication: DIABETES MELLITUS
     Dosage: 1000 MG, ORAL
     Route: 048

REACTIONS (3)
  - RENAL FAILURE ACUTE [None]
  - VOMITING [None]
  - LACTIC ACIDOSIS [None]
